FAERS Safety Report 20547334 (Version 1)
Quarter: 2022Q1

REPORT INFORMATION
  Report Type: Spontaneous
  Country: US (occurrence: None)
  Receive Date: 20220303
  Receipt Date: 20220303
  Transmission Date: 20220423
  Serious: No
  Sender: FDA-Public Use
  Company Number: None

PATIENT
  Age: 63 Year
  Sex: Female

DRUGS (1)
  1. OTEZLA [Suspect]
     Active Substance: APREMILAST
     Indication: Psoriasis
     Dosage: FREQUENCY : TWICE A DAY;?
     Route: 048
     Dates: start: 20220204, end: 20220215

REACTIONS (4)
  - Nausea [None]
  - Abdominal pain upper [None]
  - Wrong technique in product usage process [None]
  - Impaired work ability [None]

NARRATIVE: CASE EVENT DATE: 20220209
